FAERS Safety Report 4365955-2 (Version None)
Quarter: 2004Q2

REPORT INFORMATION
  Report Type: 
  Country: None (occurrence: None)
  Receive Date: 20040527
  Receipt Date: 20030714
  Transmission Date: 20050107
  Serious: No
  Sender: FDA-Public Use
  Company Number: US-GLAXOSMITHKLINE-A0416659A

PATIENT
  Age: 70 Year
  Sex: Female

DRUGS (10)
  1. LANOXIN [Suspect]
     Dosage: .125MG PER DAY
     Route: 058
     Dates: start: 20030711, end: 20030711
  2. FENTANYL [Concomitant]
  3. LOVENOX [Concomitant]
  4. FUROSEMIDE [Concomitant]
  5. INSULIN [Concomitant]
  6. XOPENEX [Concomitant]
  7. IPRATROPIUM BROMIDE [Concomitant]
  8. LORAZEPAM [Concomitant]
  9. NYSTATIN [Concomitant]
  10. MICONAZOLE [Concomitant]

REACTIONS (3)
  - INJECTION SITE PAIN [None]
  - INJECTION SITE SWELLING [None]
  - MEDICATION ERROR [None]
